FAERS Safety Report 23498765 (Version 1)
Quarter: 2024Q1

REPORT INFORMATION
  Report Type: Spontaneous
  Country: US (occurrence: US)
  Receive Date: 20240208
  Receipt Date: 20240208
  Transmission Date: 20240410
  Serious: No
  Sender: FDA-Public Use
  Company Number: US-SA-SAC20240201000153

PATIENT
  Age: 1 Year
  Sex: Male

DRUGS (1)
  1. DUPIXENT [Suspect]
     Active Substance: DUPILUMAB
     Dosage: DOSE OR AMOUNT: 200MG FREQUENCY: Q4W
     Route: 058

REACTIONS (4)
  - Increased appetite [Unknown]
  - Initial insomnia [Unknown]
  - Pruritus [Unknown]
  - Therapeutic response shortened [Unknown]
